FAERS Safety Report 4769066-3 (Version None)
Quarter: 2005Q3

REPORT INFORMATION
  Report Type: 
  Country: None (occurrence: None)
  Receive Date: 20050913
  Receipt Date: 20050902
  Transmission Date: 20060218
  Serious: Yes (Hospitalization)
  Sender: FDA-Public Use
  Company Number: 2005123008

PATIENT
  Age: 63 Year
  Sex: Female

DRUGS (9)
  1. ZITHROMAX [Suspect]
     Indication: NASOPHARYNGITIS
     Dosage: 500 MG (250 MG, DAILY), ORAL
     Route: 048
     Dates: start: 20050324, end: 20050326
  2. ASPIRIN [Concomitant]
  3. SORTIS (ATORVASTATIN) [Concomitant]
  4. INSULINE ULTRALENTE (INSULIN ZINC SUSPENSION) [Concomitant]
  5. GLUCOPHATE (METFORMIN HYDROCHLORIDE) [Concomitant]
  6. COVERSUM (PERINDOPRIL) [Concomitant]
  7. LOPRESOR OROS (METOPROLOL FUMARATE) [Concomitant]
  8. ACETAMINOPHEN [Concomitant]
  9. ACETYLCYSTEINE [Concomitant]

REACTIONS (6)
  - CANDIDIASIS [None]
  - METABOLIC ACIDOSIS [None]
  - NAUSEA [None]
  - OESOPHAGITIS [None]
  - RENAL FAILURE ACUTE [None]
  - VOMITING [None]
